FAERS Safety Report 10043344 (Version 1)
Quarter: 2014Q1

REPORT INFORMATION
  Report Type: Spontaneous
  Country: US (occurrence: None)
  Receive Date: 20140327
  Receipt Date: 20140327
  Transmission Date: 20141002
  Serious: Yes (Other)
  Sender: FDA-Public Use
  Company Number: None

PATIENT
  Age: 37 Year
  Sex: Female
  Weight: 77.11 kg

DRUGS (2)
  1. ALPRAZOLAM [Suspect]
     Indication: ANXIETY
     Route: 048
  2. QUETIAPINE [Suspect]
     Indication: ANXIETY
     Route: 048

REACTIONS (3)
  - Dyspnoea [None]
  - Oedema [None]
  - Hypertension [None]
